FAERS Safety Report 8609967-9 (Version None)
Quarter: 2012Q3

REPORT INFORMATION
  Report Type: 
  Country: None (occurrence: None)
  Receive Date: 20120821
  Receipt Date: 20120808
  Transmission Date: 20120928
  Serious: Yes (Life-Threatening)
  Sender: FDA-Public Use
  Company Number: GB-MYLANLABS-2012S1016594

PATIENT
  Age: 42 Year
  Sex: Male

DRUGS (9)
  1. GLICLAZIDE [Concomitant]
     Indication: DIABETES MELLITUS
  2. FOSAMPRENAVIR CALCIUM [Suspect]
     Indication: HIV INFECTION
  3. EMTRICITABINE [Suspect]
     Indication: HIV INFECTION
  4. RITONAVIR [Suspect]
     Indication: HIV INFECTION
  5. ASPIRIN [Concomitant]
     Indication: PRODUCT USED FOR UNKNOWN INDICATION
  6. PRAVASTATIN [Concomitant]
     Indication: HYPERCHOLESTEROLAEMIA
  7. CLOPIDEGREL [Concomitant]
     Indication: PRODUCT USED FOR UNKNOWN INDICATION
  8. SIMVASTATIN [Suspect]
     Indication: HYPERCHOLESTEROLAEMIA
  9. RITONAVIR [Suspect]

REACTIONS (1)
  - DRUG INTERACTION [None]
